FAERS Safety Report 6189144-4 (Version None)
Quarter: 2009Q2

REPORT INFORMATION
  Report Type: 
  Country: None (occurrence: None)
  Receive Date: 20090513
  Receipt Date: 20090305
  Transmission Date: 20091009
  Serious: No
  Sender: FDA-Public Use
  Company Number: A0771866A

PATIENT
  Age: 22 Year
  Sex: Female

DRUGS (3)
  1. TREXIMET [Suspect]
     Indication: HEADACHE
     Dosage: 1TAB SINGLE DOSE
     Route: 048
     Dates: start: 20090227, end: 20090227
  2. TOPAMAX [Suspect]
     Dosage: 25MG PER DAY
     Route: 048
     Dates: start: 20090227
  3. NO CONCURRENT MEDICATION [Concomitant]

REACTIONS (3)
  - HEADACHE [None]
  - OROPHARYNGEAL DISCOMFORT [None]
  - URTICARIA [None]
